FAERS Safety Report 25549241 (Version 1)
Quarter: 2025Q3

REPORT INFORMATION
  Report Type: Spontaneous
  Country: US (occurrence: US)
  Receive Date: 20250714
  Receipt Date: 20250714
  Transmission Date: 20251021
  Serious: No
  Sender: ASTELLAS
  Company Number: US-ASTELLAS-2025-AER-022407

PATIENT
  Age: 71 Year
  Sex: Female

DRUGS (1)
  1. MYRBETRIQ [Suspect]
     Active Substance: MIRABEGRON
     Indication: Product used for unknown indication
     Route: 050
     Dates: start: 2025

REACTIONS (6)
  - Rash papular [Recovering/Resolving]
  - Rash pruritic [Recovering/Resolving]
  - Dry skin [Recovering/Resolving]
  - Gastrointestinal disorder [Unknown]
  - Skin irritation [Recovering/Resolving]
  - Pain of skin [Recovering/Resolving]

NARRATIVE: CASE EVENT DATE: 20250410
